FAERS Safety Report 6978808-8 (Version None)
Quarter: 2010Q3

REPORT INFORMATION
  Report Type: 
  Country: None (occurrence: None)
  Receive Date: 20100908
  Receipt Date: 20100823
  Transmission Date: 20110219
  Serious: Yes (Hospitalization, Other)
  Sender: FDA-Public Use
  Company Number: ACO_01905_2010

PATIENT
  Sex: Female
  Weight: 56.6996 kg

DRUGS (10)
  1. AMPYRA [Suspect]
     Indication: MULTIPLE SCLEROSIS
     Dosage: (10 MG BID ORAL)
     Route: 048
     Dates: start: 20100701, end: 20100801
  2. TYSABRI [Suspect]
     Indication: MULTIPLE SCLEROSIS
     Dosage: (DF)
     Dates: start: 20100813
  3. BACLOFEN [Concomitant]
  4. EFFEXOR [Concomitant]
  5. LISINOPRIL [Concomitant]
  6. COREG [Concomitant]
  7. LORAZEPAM [Concomitant]
  8. MULTI-VITAMINS [Concomitant]
  9. CALCIUM [Concomitant]
  10. VITAMIN D [Concomitant]

REACTIONS (8)
  - CONVULSION [None]
  - FEELING ABNORMAL [None]
  - MEMORY IMPAIRMENT [None]
  - MENTAL STATUS CHANGES [None]
  - NAUSEA [None]
  - THINKING ABNORMAL [None]
  - THOUGHT BLOCKING [None]
  - UNRESPONSIVE TO STIMULI [None]
